FAERS Safety Report 6291456-0 (Version None)
Quarter: 2009Q3

REPORT INFORMATION
  Report Type: 
  Country: None (occurrence: None)
  Receive Date: 20090730
  Receipt Date: 20090724
  Transmission Date: 20100115
  Serious: Yes (Other)
  Sender: FDA-Public Use
  Company Number: GB-AVENTIS-200913001EU

PATIENT
  Sex: Female

DRUGS (8)
  1. ENOXAPARIN SODIUM [Suspect]
     Indication: PREGNANCY
     Route: 058
     Dates: end: 20090601
  2. ENOXAPARIN SODIUM [Suspect]
     Route: 058
     Dates: start: 20090602
  3. ENOXAPARIN SODIUM [Suspect]
     Route: 058
     Dates: end: 20090601
  4. ENOXAPARIN SODIUM [Suspect]
     Route: 058
     Dates: start: 20090602
  5. ENOXAPARIN SODIUM [Suspect]
     Route: 058
     Dates: end: 20090601
  6. ENOXAPARIN SODIUM [Suspect]
     Route: 058
     Dates: start: 20090602
  7. PROGESTERONE [Concomitant]
     Route: 058
     Dates: start: 20090602
  8. NORPROLAC [Concomitant]

REACTIONS (2)
  - ABORTION SPONTANEOUS [None]
  - DRUG EXPOSURE DURING PREGNANCY [None]
